FAERS Safety Report 9694048 (Version 1)
Quarter: 2013Q4

REPORT INFORMATION
  Report Type: Spontaneous
  Country: US (occurrence: US)
  Receive Date: 20131118
  Receipt Date: 20131118
  Transmission Date: 20140711
  Serious: Yes (Hospitalization, Other)
  Sender: FDA-Public Use
  Company Number: US-TEVA-444435USA

PATIENT
  Age: 59 Year
  Sex: Female

DRUGS (2)
  1. CARBOPLATIN [Suspect]
     Indication: PAPILLARY SEROUS ENDOMETRIAL CARCINOMA
     Route: 065
  2. DOCETAXEL [Suspect]
     Indication: PAPILLARY SEROUS ENDOMETRIAL CARCINOMA
     Route: 065

REACTIONS (4)
  - Tumour lysis syndrome [Recovered/Resolved]
  - Pulmonary embolism [Recovered/Resolved]
  - Infection [Recovered/Resolved]
  - Skin disorder [Recovered/Resolved]
